FAERS Safety Report 18533409 (Version 1)
Quarter: 2020Q4

REPORT INFORMATION
  Report Type: Spontaneous
  Country: AU (occurrence: AU)
  Receive Date: 20201123
  Receipt Date: 20201123
  Transmission Date: 20210114
  Serious: Yes (Other)
  Sender: FDA-Public Use
  Company Number: NVSC2020AU307552

PATIENT
  Age: 59 Year
  Sex: Male

DRUGS (1)
  1. GILENYA [Suspect]
     Active Substance: FINGOLIMOD HYDROCHLORIDE
     Indication: MULTIPLE SCLEROSIS
     Dosage: UNK UNK, QD (2007 ABOUT)
     Route: 048
     Dates: end: 201606

REACTIONS (6)
  - Urinary tract infection [Unknown]
  - Gait disturbance [Unknown]
  - White blood cell count decreased [Unknown]
  - Immune system disorder [Unknown]
  - Kidney infection [Unknown]
  - Neutrophil count decreased [Unknown]
